FAERS Safety Report 8085558-6 (Version None)
Quarter: 2012Q1

REPORT INFORMATION
  Report Type: 
  Country: None (occurrence: None)
  Receive Date: 20120128
  Receipt Date: 20110517
  Transmission Date: 20120608
  Serious: No
  Sender: FDA-Public Use
  Company Number: US-ABBOTT-11P-163-0714893-00

PATIENT
  Age: 63 Year
  Sex: Female

DRUGS (13)
  1. VITAMIN D [Concomitant]
     Indication: PRODUCT USED FOR UNKNOWN INDICATION
     Dosage: 50,000 UNITS A WEEK
     Route: 048
  2. BENADRYL [Concomitant]
     Indication: INSOMNIA
  3. MULTI-VITAMIN [Concomitant]
     Indication: PRODUCT USED FOR UNKNOWN INDICATION
  4. LORTAB [Concomitant]
     Indication: PAIN
  5. IBUPROFEN [Concomitant]
     Indication: PAIN
  6. BENICAR [Concomitant]
     Indication: HYPERTENSION
  7. HUMIRA [Suspect]
     Indication: RHEUMATOID ARTHRITIS
     Dates: start: 20110119
  8. LEVOXYL [Concomitant]
     Indication: THYROIDECTOMY
  9. LEVOXYL [Concomitant]
     Indication: HYPOTHYROIDISM
  10. PRILOSEC OTC [Concomitant]
     Indication: PRODUCT USED FOR UNKNOWN INDICATION
  11. HUMIRA [Suspect]
     Dosage: PREVIOUSLY USED HUMIRA PEN ONCE WEEKLY
     Dates: start: 20091101
  12. PREDNISONE TAB [Concomitant]
     Indication: PRODUCT USED FOR UNKNOWN INDICATION
  13. CITRUCEL [Concomitant]
     Indication: PRODUCT USED FOR UNKNOWN INDICATION

REACTIONS (4)
  - OEDEMA PERIPHERAL [None]
  - GAIT DISTURBANCE [None]
  - CONDITION AGGRAVATED [None]
  - OSTEOARTHRITIS [None]
